FAERS Safety Report 23052715 (Version 2)
Quarter: 2023Q4

REPORT INFORMATION
  Report Type: Spontaneous
  Country: JP (occurrence: JP)
  Receive Date: 20231011
  Receipt Date: 20231201
  Transmission Date: 20240109
  Serious: No
  Sender: FDA-Public Use
  Company Number: JP-JNJFOC-20231023350

PATIENT
  Age: 57 Year
  Sex: Female
  Weight: 58 kg

DRUGS (9)
  1. TREMFYA [Suspect]
     Active Substance: GUSELKUMAB
     Indication: Palmoplantar pustulosis
     Dosage: DOSE UNKNOWN
     Route: 058
     Dates: start: 20230428, end: 20230428
  2. TREMFYA [Suspect]
     Active Substance: GUSELKUMAB
     Dosage: DOSE UNKNOWN
     Route: 058
     Dates: start: 20230526, end: 20230526
  3. TREMFYA [Suspect]
     Active Substance: GUSELKUMAB
     Dosage: DOSE UNKNOWN
     Route: 058
     Dates: start: 20230721, end: 20230721
  4. TREMFYA [Suspect]
     Active Substance: GUSELKUMAB
     Dosage: DOSE UNKNOWN
     Route: 058
     Dates: start: 20230915, end: 20230915
  5. TREMFYA [Suspect]
     Active Substance: GUSELKUMAB
     Dosage: DOSE UNKNOWN
     Route: 058
     Dates: start: 20231117
  6. MIYA-BM [Concomitant]
     Active Substance: CLOSTRIDIUM BUTYRICUM SPORES STRAIN M-55
     Indication: Palmoplantar pustulosis
     Route: 048
     Dates: start: 20210716
  7. CINAL [ASCORBIC ACID;CALCIUM PANTOTHENATE] [Concomitant]
     Indication: Palmoplantar pustulosis
     Route: 048
     Dates: start: 20210716
  8. BIOTIN [Concomitant]
     Active Substance: BIOTIN
     Indication: Palmoplantar pustulosis
     Route: 048
     Dates: start: 20210716
  9. BETAMETHASONE\CALCIPOTRIENE [Concomitant]
     Active Substance: BETAMETHASONE\CALCIPOTRIENE
     Indication: Palmoplantar pustulosis
     Dosage: DOSE UNKNOWN
     Route: 061
     Dates: start: 20210716

REACTIONS (1)
  - Cellulitis [Recovered/Resolved]

NARRATIVE: CASE EVENT DATE: 20230923
